FAERS Safety Report 13362417 (Version 1)
Quarter: 2017Q1

REPORT INFORMATION
  Report Type: Spontaneous
  Country: US (occurrence: US)
  Receive Date: 20170322
  Receipt Date: 20170322
  Transmission Date: 20170429
  Serious: Yes (Hospitalization, Other)
  Sender: FDA-Public Use
  Company Number: None

PATIENT

DRUGS (1)
  1. POTASSIUM HYDROXIDE 10% W/V [Suspect]
     Active Substance: POTASSIUM HYDROXIDE

REACTIONS (3)
  - Application site burn [None]
  - Accidental exposure to product [None]
  - Product packaging confusion [None]
